FAERS Safety Report 17981510 (Version 1)
Quarter: 2020Q3

REPORT INFORMATION
  Report Type: Spontaneous
  Country: IT (occurrence: IT)
  Receive Date: 20200706
  Receipt Date: 20200706
  Transmission Date: 20201103
  Serious: Yes (Death, Life-Threatening, Hospitalization)
  Sender: FDA-Public Use
  Company Number: IT-ABBVIE-20K-083-3470533-00

PATIENT
  Age: 67 Year
  Sex: Male

DRUGS (3)
  1. HYDROCHLOROTHIAZIDE. [Concomitant]
     Active Substance: HYDROCHLOROTHIAZIDE
     Indication: PRODUCT USED FOR UNKNOWN INDICATION
  2. LEUPROLIDE [Suspect]
     Active Substance: LEUPROLIDE
     Indication: PROSTATE CANCER
     Route: 065
  3. IRBESARTAN. [Concomitant]
     Active Substance: IRBESARTAN
     Indication: PRODUCT USED FOR UNKNOWN INDICATION

REACTIONS (2)
  - Torsade de pointes [Fatal]
  - Blood testosterone decreased [Unknown]
